FAERS Safety Report 18749110 (Version 1)
Quarter: 2021Q1

REPORT INFORMATION
  Report Type: Spontaneous
  Country: US (occurrence: US)
  Receive Date: 20210116
  Receipt Date: 20210116
  Transmission Date: 20210419
  Serious: Yes (Life-Threatening, Hospitalization, Other)
  Sender: FDA-Public Use
  Company Number: US-EMCURE PHARMACEUTICALS LTD-2021-EPL-000062

PATIENT

DRUGS (1)
  1. SULFAMETHOXAZOLE, TRIMETHOPRIM [Suspect]
     Active Substance: SULFAMETHOXAZOLE\TRIMETHOPRIM
     Indication: SKIN INFECTION

REACTIONS (8)
  - Acute lung injury [Unknown]
  - Off label use [Unknown]
  - Acute respiratory distress syndrome [Unknown]
  - Pulmonary toxicity [Unknown]
  - Pneumonitis [Unknown]
  - Pneumomediastinum [Unknown]
  - Respiratory failure [Unknown]
  - Pulmonary alveolar haemorrhage [Unknown]
